FAERS Safety Report 22041070 (Version 1)
Quarter: 2023Q1

REPORT INFORMATION
  Report Type: Report from Study
  Country: US (occurrence: US)
  Receive Date: 20230227
  Receipt Date: 20230227
  Transmission Date: 20230417
  Serious: Yes (Other)
  Sender: FDA-Public Use
  Company Number: US-MYLANLABS-2023M1020951

PATIENT
  Age: 7 Year
  Sex: Male

DRUGS (5)
  1. WARFARIN [Suspect]
     Active Substance: WARFARIN
     Indication: Anticoagulant therapy
     Dosage: UNK (STOPPED 4 DAYS PRIOR TO SURGERY)
     Route: 065
  2. WARFARIN [Suspect]
     Active Substance: WARFARIN
     Dosage: UNK (ON POST OPERATIVE DAY 1, WARFARIN WAS RESUMED)
     Route: 065
  3. HEPARIN [Suspect]
     Active Substance: HEPARIN SODIUM
     Indication: Anticoagulant therapy
     Dosage: 75 INTERNATIONAL UNIT/KILOGRAM,LOADING DOSE OF 75 UNITS/KG
     Route: 042
  4. HEPARIN [Suspect]
     Active Substance: HEPARIN SODIUM
     Dosage: 20 INTERNATIONAL UNIT/KILOGRAM, QH, MAINTENANCE DOSE OF 20 UNITS/KG/H (DISCONTINUED 4-6 HOUR PRIOR
     Route: 042
  5. HEPARIN [Suspect]
     Active Substance: HEPARIN SODIUM
     Dosage: UNK (RESUMED ON POST OPERATIVE DAY 1)
     Route: 042

REACTIONS (1)
  - Haemoptysis [Recovered/Resolved]
